FAERS Safety Report 4307133-9 (Version None)
Quarter: 2004Q1

REPORT INFORMATION
  Report Type: 
  Country: None (occurrence: None)
  Receive Date: 20040225
  Receipt Date: 20030615
  Transmission Date: 20041129
  Serious: Yes (Hospitalization, Other)
  Sender: FDA-Public Use
  Company Number: KII-2003-0007286

PATIENT
  Age: 19 Year
  Sex: Male

DRUGS (3)
  1. MORPHINE [Suspect]
     Indication: DRUG USE FOR UNKNOWN INDICATION
  2. METHADONE HCL [Suspect]
     Indication: DRUG USE FOR UNKNOWN INDICATION
  3. TETRAHYDROCANNABINOL (TETRAHYDROCANNABINOL) [Suspect]
     Indication: DRUG USE FOR UNKNOWN INDICATION

REACTIONS (13)
  - BLOOD PH DECREASED [None]
  - BLOOD PRESSURE DECREASED [None]
  - COMA [None]
  - HYPOVENTILATION [None]
  - INCREASED BRONCHIAL SECRETION [None]
  - MULTIPLE DRUG OVERDOSE [None]
  - OXYGEN SATURATION DECREASED [None]
  - PCO2 INCREASED [None]
  - PNEUMONIA ASPIRATION [None]
  - RALES [None]
  - RESPIRATORY RATE INCREASED [None]
  - RHONCHI [None]
  - SINUS TACHYCARDIA [None]
